FAERS Safety Report 8803326 (Version 4)
Quarter: 2015Q1

REPORT INFORMATION
  Report Type: Report from Study
  Country: US (occurrence: US)
  Receive Date: 20120924
  Receipt Date: 20150311
  Transmission Date: 20150721
  Serious: Yes (Death, Hospitalization, Other)
  Sender: FDA-Public Use
  Company Number: US-ROCHE-1096359

PATIENT
  Age: 59 Year
  Sex: Female

DRUGS (22)
  1. ECOTRIN [Concomitant]
     Active Substance: ASPIRIN
     Route: 065
  2. BENADRYL [Concomitant]
     Active Substance: DIPHENHYDRAMINE HYDROCHLORIDE
     Route: 065
  3. COMPAZINE [Concomitant]
     Active Substance: PROCHLORPERAZINE MALEATE
     Route: 065
  4. SENOKOT [Concomitant]
     Active Substance: SENNOSIDES
     Route: 065
  5. AVASTIN [Suspect]
     Active Substance: BEVACIZUMAB
     Indication: MALIGNANT URINARY TRACT NEOPLASM
  6. POTASSIUM CHLORIDE. [Concomitant]
     Active Substance: POTASSIUM CHLORIDE
  7. TOPROL XL [Concomitant]
     Active Substance: METOPROLOL SUCCINATE
     Route: 065
  8. NITROGLYCERINE [Concomitant]
     Active Substance: NITROGLYCERIN
     Route: 065
  9. TEMSIROLIMUS [Concomitant]
     Active Substance: TEMSIROLIMUS
  10. DIGOXIN. [Concomitant]
     Active Substance: DIGOXIN
     Route: 065
  11. NEXAVAR [Concomitant]
     Active Substance: SORAFENIB
  12. TYLENOL [Concomitant]
     Active Substance: ACETAMINOPHEN
     Route: 048
  13. AVASTIN [Suspect]
     Active Substance: BEVACIZUMAB
     Indication: RENAL CANCER
     Route: 042
     Dates: start: 20060927
  14. TORISEL [Concomitant]
     Active Substance: TEMSIROLIMUS
     Route: 042
  15. LISINOPRIL. [Concomitant]
     Active Substance: LISINOPRIL
     Route: 065
  16. DECADRON [Concomitant]
     Active Substance: DEXAMETHASONE
     Route: 042
  17. ZETIA [Concomitant]
     Active Substance: EZETIMIBE
  18. MORPHINE [Concomitant]
     Active Substance: MORPHINE
     Indication: PAIN
  19. LASIX [Concomitant]
     Active Substance: FUROSEMIDE
     Route: 065
  20. AMPICILLIN [Concomitant]
     Active Substance: AMPICILLIN
     Indication: URINARY TRACT INFECTION
  21. ASPIRIN. [Concomitant]
     Active Substance: ASPIRIN
  22. PHENERGAN [Concomitant]
     Active Substance: PROMETHAZINE HYDROCHLORIDE

REACTIONS (17)
  - Thoracic vertebral fracture [Unknown]
  - Aortic calcification [Unknown]
  - Lymphadenopathy mediastinal [Unknown]
  - Flank pain [Unknown]
  - Arteriosclerosis coronary artery [Unknown]
  - Constipation [Unknown]
  - Lumbar vertebral fracture [Unknown]
  - Nausea [Unknown]
  - Fatigue [Unknown]
  - Death [Fatal]
  - Chest pain [Unknown]
  - Disease progression [Unknown]
  - Blood pressure fluctuation [Unknown]
  - Hypertension [Recovering/Resolving]
  - Off label use [Unknown]
  - Skin lesion [Unknown]
  - Back pain [Unknown]

NARRATIVE: CASE EVENT DATE: 20070817
